FAERS Safety Report 22083131 (Version 2)
Quarter: 2023Q2

REPORT INFORMATION
  Report Type: Other
  Country: GB (occurrence: None)
  Receive Date: 20230310
  Receipt Date: 20230401
  Transmission Date: 20230721
  Serious: Yes (Other)
  Sender: FDA-Public Use
  Company Number: GB-ROCHE-3304485

PATIENT
  Sex: Female

DRUGS (1)
  1. TOCILIZUMAB [Suspect]
     Active Substance: TOCILIZUMAB
     Indication: Product used for unknown indication
     Route: 058
     Dates: start: 202301

REACTIONS (7)
  - Cerebral disorder [Unknown]
  - Memory impairment [Unknown]
  - Cardiac failure [Unknown]
  - Arthralgia [Unknown]
  - Muscle spasms [Unknown]
  - Movement disorder [Unknown]
  - Hypokinesia [Unknown]
